FAERS Safety Report 14098196 (Version 2)
Quarter: 2017Q4

REPORT INFORMATION
  Report Type: Spontaneous
  Country: US (occurrence: US)
  Receive Date: 20171016
  Receipt Date: 20171018
  Transmission Date: 20180321
  Serious: No
  Sender: FDA-Public Use
  Company Number: US-AMGEN-USASP2017050396

PATIENT
  Age: 67 Year
  Sex: Female

DRUGS (3)
  1. PROLIA [Suspect]
     Active Substance: DENOSUMAB
     Indication: OSTEOPENIA
     Dosage: UNK, Q6MO
     Route: 065
  2. CALCIUM [Concomitant]
     Active Substance: CALCIUM
     Indication: NEPHROLITHIASIS
     Dosage: UNK UNK, QD
  3. ARIMIDEX [Concomitant]
     Active Substance: ANASTROZOLE
     Indication: BONE LOSS
     Dosage: UNK

REACTIONS (1)
  - Pruritus [Unknown]
